FAERS Safety Report 18354779 (Version 1)
Quarter: 2020Q4

REPORT INFORMATION
  Report Type: Spontaneous
  Country: IT (occurrence: IT)
  Receive Date: 20201007
  Receipt Date: 20201007
  Transmission Date: 20210114
  Serious: Yes (Other)
  Sender: FDA-Public Use
  Company Number: IT-TEVA-2020-IT-1831095

PATIENT
  Age: 63 Year
  Sex: Male

DRUGS (10)
  1. PEGFILGRASTIM [Suspect]
     Active Substance: PEGFILGRASTIM
     Indication: PROPHYLAXIS
     Route: 065
  2. RITUXIMAB. [Suspect]
     Active Substance: RITUXIMAB
     Indication: B-CELL LYMPHOMA
     Dosage: 375 MG/M2, CYCLIC (DAY 1), EVERY 28 DAYS FOR 6 CYCLES
     Route: 065
  3. PEGFILGRASTIM [Suspect]
     Active Substance: PEGFILGRASTIM
     Indication: ANAEMIA PROPHYLAXIS
     Dosage: 6 MG, UNKNOWN FREQ. (ON DAY 4)
     Route: 065
  4. VINCRISTINE [Suspect]
     Active Substance: VINCRISTINE
     Indication: B-CELL LYMPHOMA
     Route: 065
  5. ERYTHROPOIETIN (ERYTHROPOIETIN) [Suspect]
     Active Substance: ERYTHROPOIETIN
     Indication: PROPHYLAXIS
  6. BENDAMUSTIN HYDROCHLORIDE [Suspect]
     Active Substance: BENDAMUSTINE HYDROCHLORIDE
     Indication: B-CELL LYMPHOMA
     Dosage: 90 MG/M2, CYCLIC (ON DAY 1-2) EVERY 28 DAYS FOR 6 CYCLES
     Route: 042
  7. DOXORUBICIN [Suspect]
     Active Substance: DOXORUBICIN
     Indication: B-CELL LYMPHOMA
     Route: 065
  8. PREDNISONE. [Suspect]
     Active Substance: PREDNISONE
     Indication: B-CELL LYMPHOMA
     Route: 065
  9. ERYTHROPOIETIN (ERYTHROPOIETIN) [Suspect]
     Active Substance: ERYTHROPOIETIN
     Indication: ANAEMIA PROPHYLAXIS
     Dosage: 30000 U, ONCE WEEKLY
     Route: 065
  10. CYCLOPHOSPHAMIDE. [Suspect]
     Active Substance: CYCLOPHOSPHAMIDE
     Indication: B-CELL LYMPHOMA
     Route: 065

REACTIONS (4)
  - Anaemia [Unknown]
  - Drug ineffective [Unknown]
  - Febrile neutropenia [Unknown]
  - Underdose [Unknown]
